FAERS Safety Report 7943816-7 (Version None)
Quarter: 2011Q4

REPORT INFORMATION
  Report Type: 
  Country: None (occurrence: None)
  Receive Date: 20111128
  Receipt Date: 20111121
  Transmission Date: 20120403
  Serious: Yes (Hospitalization)
  Sender: FDA-Public Use
  Company Number: DE-ABBOTT-11P-062-0876183-00

PATIENT
  Sex: Male
  Weight: 87 kg

DRUGS (4)
  1. HUMIRA [Suspect]
     Indication: PSORIATIC ARTHROPATHY
     Route: 058
     Dates: start: 20100315, end: 20111113
  2. ASPIRIN [Concomitant]
     Indication: ARTERIAL OCCLUSIVE DISEASE
     Route: 048
     Dates: start: 20010101
  3. PROCORALAN [Concomitant]
     Indication: CORONARY ARTERY DISEASE
     Route: 048
     Dates: start: 20010101
  4. TELMISARTAN [Concomitant]
     Indication: HYPERTENSION
     Dosage: 80/25MG DAILY
     Route: 048
     Dates: start: 20010101

REACTIONS (2)
  - INTERVERTEBRAL DISC DISORDER [None]
  - SCIATICA [None]
